FAERS Safety Report 23527582 (Version 1)
Quarter: 2024Q1

REPORT INFORMATION
  Report Type: Spontaneous
  Country: US (occurrence: US)
  Receive Date: 20240215
  Receipt Date: 20240215
  Transmission Date: 20240410
  Serious: No
  Sender: FDA-Public Use
  Company Number: US-E2BLSMVVAL-SPO/USA/24/0002225

PATIENT
  Sex: Female

DRUGS (1)
  1. LEVOCETIRIZINE [Suspect]
     Active Substance: LEVOCETIRIZINE
     Indication: Oropharyngeal pain
     Dosage: I TOOK AT 6 PM
     Dates: end: 20240123

REACTIONS (4)
  - Oropharyngeal pain [Unknown]
  - Gait disturbance [Unknown]
  - Movement disorder [Unknown]
  - Asthenia [Unknown]
